FAERS Safety Report 8023630-7 (Version None)
Quarter: 2012Q1

REPORT INFORMATION
  Report Type: 
  Country: None (occurrence: None)
  Receive Date: 20120104
  Receipt Date: 20120104
  Transmission Date: 20120608
  Serious: Yes (Other)
  Sender: FDA-Public Use
  Company Number: None

PATIENT

DRUGS (5)
  1. PRILOCAINE HYDROCHLORIDE [Suspect]
  2. ANALOGUES [Suspect]
  3. PROCAINE HCL [Suspect]
  4. LIDOCAINE [Suspect]
  5. MEPIVACAINE HCL [Suspect]

REACTIONS (1)
  - NO ADVERSE EVENT [None]
